FAERS Safety Report 14689070 (Version 4)
Quarter: 2018Q2

REPORT INFORMATION
  Report Type: Report from Study
  Country: US (occurrence: US)
  Receive Date: 20180328
  Receipt Date: 20180608
  Transmission Date: 20180711
  Serious: No
  Sender: FDA-Public Use
  Company Number: US-AMGEN-USASL2018041111

PATIENT
  Age: 65 Year
  Sex: Female

DRUGS (2)
  1. ENBREL [Suspect]
     Active Substance: ETANERCEPT
     Indication: RHEUMATOID ARTHRITIS
     Dosage: 50 MG, QWK
     Route: 065
  2. PRIALT [Suspect]
     Active Substance: ZICONOTIDE ACETATE
     Indication: PRODUCT USED FOR UNKNOWN INDICATION
     Dosage: UNK
     Route: 065

REACTIONS (10)
  - Drug ineffective [Unknown]
  - Oral discomfort [Not Recovered/Not Resolved]
  - Confusional state [Unknown]
  - Eye disorder [Unknown]
  - Gait disturbance [Not Recovered/Not Resolved]
  - Dry mouth [Not Recovered/Not Resolved]
  - Ageusia [Not Recovered/Not Resolved]
  - Walking aid user [Unknown]
  - Feeling abnormal [Not Recovered/Not Resolved]
  - Tongue discomfort [Not Recovered/Not Resolved]

NARRATIVE: CASE EVENT DATE: 2018
